FAERS Safety Report 7970327-5 (Version None)
Quarter: 2011Q4

REPORT INFORMATION
  Report Type: 
  Country: None (occurrence: None)
  Receive Date: 20111212
  Receipt Date: 20111201
  Transmission Date: 20120403
  Serious: Yes (Hospitalization, Other)
  Sender: FDA-Public Use
  Company Number: US-BAYER-2011-040696

PATIENT
  Age: 41 Year
  Sex: Female
  Weight: 117.91 kg

DRUGS (4)
  1. ALLEGRA [Concomitant]
     Dosage: 180 MG, DAILY
     Route: 048
     Dates: start: 19950101
  2. YASMIN [Suspect]
     Dosage: UNK
     Dates: start: 20040601, end: 20060401
  3. IBUPROFEN [Concomitant]
     Route: 048
  4. ANAPROX [Concomitant]
     Indication: BACK PAIN
     Dosage: 550 MG, PRN
     Route: 048

REACTIONS (9)
  - PAIN [None]
  - EMOTIONAL DISTRESS [None]
  - DEEP VEIN THROMBOSIS [None]
  - GENERAL PHYSICAL HEALTH DETERIORATION [None]
  - MENORRHAGIA [None]
  - MENOMETRORRHAGIA [None]
  - PULMONARY EMBOLISM [None]
  - INJURY [None]
  - ANXIETY [None]
